FAERS Safety Report 25524168 (Version 1)
Quarter: 2025Q3

REPORT INFORMATION
  Report Type: Spontaneous
  Country: US (occurrence: US)
  Receive Date: 20250707
  Receipt Date: 20250707
  Transmission Date: 20251020
  Serious: Yes (Life-Threatening, Hospitalization)
  Sender: MYLAN
  Company Number: US-MYLANLABS-2025M1055045

PATIENT
  Age: 39 Year
  Sex: Female

DRUGS (16)
  1. ACETAMINOPHEN [Suspect]
     Active Substance: ACETAMINOPHEN
     Indication: Product used for unknown indication
  2. ACETAMINOPHEN [Suspect]
     Active Substance: ACETAMINOPHEN
     Route: 065
  3. ACETAMINOPHEN [Suspect]
     Active Substance: ACETAMINOPHEN
     Route: 065
  4. ACETAMINOPHEN [Suspect]
     Active Substance: ACETAMINOPHEN
  5. DEXMEDETOMIDINE HYDROCHLORIDE [Suspect]
     Active Substance: DEXMEDETOMIDINE HYDROCHLORIDE
     Indication: Agitation
     Dosage: 0.4 MICROGRAM/KILOGRAM, QH, INFUSION
  6. DEXMEDETOMIDINE HYDROCHLORIDE [Suspect]
     Active Substance: DEXMEDETOMIDINE HYDROCHLORIDE
     Dosage: 0.4 MICROGRAM/KILOGRAM, QH, INFUSION
     Route: 065
  7. DEXMEDETOMIDINE HYDROCHLORIDE [Suspect]
     Active Substance: DEXMEDETOMIDINE HYDROCHLORIDE
     Dosage: 0.4 MICROGRAM/KILOGRAM, QH, INFUSION
     Route: 065
  8. DEXMEDETOMIDINE HYDROCHLORIDE [Suspect]
     Active Substance: DEXMEDETOMIDINE HYDROCHLORIDE
     Dosage: 0.4 MICROGRAM/KILOGRAM, QH, INFUSION
  9. ATROPINE [Concomitant]
     Active Substance: ATROPINE
     Indication: Bradycardia
  10. ATROPINE [Concomitant]
     Active Substance: ATROPINE
     Route: 065
  11. ATROPINE [Concomitant]
     Active Substance: ATROPINE
     Route: 065
  12. ATROPINE [Concomitant]
     Active Substance: ATROPINE
  13. HALOPERIDOL [Concomitant]
     Active Substance: HALOPERIDOL
     Indication: Agitation
  14. HALOPERIDOL [Concomitant]
     Active Substance: HALOPERIDOL
     Route: 065
  15. HALOPERIDOL [Concomitant]
     Active Substance: HALOPERIDOL
     Route: 065
  16. HALOPERIDOL [Concomitant]
     Active Substance: HALOPERIDOL

REACTIONS (7)
  - Bradycardia [Recovered/Resolved]
  - Torsade de pointes [Recovered/Resolved]
  - Overdose [Unknown]
  - Mental status changes [Unknown]
  - Agitation [Unknown]
  - Encephalopathy [Unknown]
  - Pulse absent [Recovered/Resolved]
